FAERS Safety Report 7529093-X (Version None)
Quarter: 2011Q2

REPORT INFORMATION
  Report Type: 
  Country: None (occurrence: None)
  Receive Date: 20110607
  Receipt Date: 20110525
  Transmission Date: 20111010
  Serious: Yes (Other)
  Sender: FDA-Public Use
  Company Number: DE-PURDUE-USA-2011-0069478

PATIENT
  Sex: Female

DRUGS (6)
  1. CITALOPRAM HYDROBROMIDE [Suspect]
     Indication: DEPRESSION
     Dosage: 20 MG, DAILY
     Route: 048
     Dates: end: 20101209
  2. ENALAPRIL MALEATE [Suspect]
     Indication: HYPERTENSION
     Dosage: 5 MG, DAILY
     Route: 048
  3. CODEINE SULFATE [Concomitant]
     Indication: SUBSTANCE ABUSE
     Dosage: 4.5 G, WEEKLY
     Route: 048
     Dates: end: 20101209
  4. TRAMADOL HCL [Suspect]
     Indication: SUBSTANCE ABUSE
     Dosage: 1200 MG, DAILY
     Route: 048
     Dates: end: 20101209
  5. AMLODIPINE [Suspect]
     Indication: HYPERTENSION
     Dosage: 10 MG, DAILY
     Route: 048
  6. ACETAMINOPHEN [Concomitant]
     Indication: SUBSTANCE ABUSE
     Dosage: 7.5 UNK, WEEKLY
     Route: 048
     Dates: end: 20101209

REACTIONS (2)
  - ABORTION SPONTANEOUS [None]
  - DRUG ABUSE [None]
